FAERS Safety Report 6712043-3 (Version None)
Quarter: 2010Q2

REPORT INFORMATION
  Report Type: 
  Country: None (occurrence: None)
  Receive Date: 20100505
  Receipt Date: 20100430
  Transmission Date: 20101027
  Serious: Yes (Other)
  Sender: FDA-Public Use
  Company Number: GB-JNJCH-2010010347

PATIENT

DRUGS (1)
  1. BENADRYL ONE A DAY [Suspect]
     Indication: SEASONAL ALLERGY
     Route: 048

REACTIONS (1)
  - LAPAROTOMY [None]
